FAERS Safety Report 7699939-3 (Version None)
Quarter: 2011Q3

REPORT INFORMATION
  Report Type: 
  Country: None (occurrence: None)
  Receive Date: 20110822
  Receipt Date: 20100108
  Transmission Date: 20111222
  Serious: No
  Sender: FDA-Public Use
  Company Number: US-BAYER-201010833NA

PATIENT
  Age: 53 Year
  Sex: Female

DRUGS (1)
  1. ANGELIQ [Suspect]

REACTIONS (2)
  - NIPPLE PAIN [None]
  - BREAST TENDERNESS [None]
